FAERS Safety Report 7747317-0 (Version None)
Quarter: 2011Q3

REPORT INFORMATION
  Report Type: 
  Country: None (occurrence: None)
  Receive Date: 20110909
  Receipt Date: 20110826
  Transmission Date: 20111222
  Serious: Yes (Disabling)
  Sender: FDA-Public Use
  Company Number: AUR-APL-2011-04840

PATIENT
  Age: 71 Year
  Sex: Male

DRUGS (6)
  1. ATENOLOL [Concomitant]
  2. PROSTAP (LEUPRORELIN ACETATE) [Concomitant]
  3. SIMVASTATIN [Suspect]
     Indication: HYPERCHOLESTEROLAEMIA
     Dosage: 40 MG, ORAL
     Route: 048
     Dates: start: 20090730
  4. BENDROFLUMETHIAZIDE (BENDROFLUMETHIAZIDE) [Concomitant]
  5. CYPROTERONE ACETATE (CYPROTERONE ACETATE) [Suspect]
     Indication: PROSTATE CANCER
     Dosage: 300 MG (100 MG, 3 IN 1 D), ORAL
     Route: 048
     Dates: start: 20110628
  6. ALLOPURINOL [Concomitant]

REACTIONS (2)
  - RHABDOMYOLYSIS [None]
  - FATIGUE [None]
